FAERS Safety Report 7361276-4 (Version None)
Quarter: 2011Q1

REPORT INFORMATION
  Report Type: 
  Country: None (occurrence: None)
  Receive Date: 20110318
  Receipt Date: 20110316
  Transmission Date: 20110831
  Serious: Yes (Death, Hospitalization)
  Sender: FDA-Public Use
  Company Number: A0849312A

PATIENT
  Age: 66 Year
  Sex: Male
  Weight: 157.7 kg

DRUGS (8)
  1. PRINIVIL [Concomitant]
  2. LASIX [Concomitant]
  3. AVANDIA [Suspect]
     Indication: DIABETES MELLITUS
     Dosage: 8MG PER DAY
     Route: 048
     Dates: start: 20000101
  4. AMARYL [Concomitant]
  5. LIPITOR [Concomitant]
  6. MONOPRIL [Concomitant]
  7. POTASSIUM [Concomitant]
  8. PLAVIX [Concomitant]

REACTIONS (7)
  - DEATH [None]
  - MYOCARDIAL INFARCTION [None]
  - CORONARY ARTERY DISEASE [None]
  - CEREBROVASCULAR ACCIDENT [None]
  - ISCHAEMIC CARDIOMYOPATHY [None]
  - ATRIOVENTRICULAR BLOCK [None]
  - CARDIAC FAILURE CONGESTIVE [None]
